FAERS Safety Report 9236508 (Version 1)
Quarter: 2013Q2

REPORT INFORMATION
  Report Type: Spontaneous
  Country: US (occurrence: None)
  Receive Date: 20130415
  Receipt Date: 20130415
  Transmission Date: 20140414
  Serious: No
  Sender: FDA-Public Use
  Company Number: 2013US-004578

PATIENT
  Age: 72 Year
  Sex: Female
  Weight: 70 kg

DRUGS (13)
  1. OMONTYS (PEGINESATIDE) SOLUTION FOR INJECTION [Suspect]
     Indication: NEPHROGENIC ANAEMIA
     Dosage: 10 MG, Q 4 WEEKS, INTRAVENOUS
     Route: 042
     Dates: start: 20130212, end: 20130212
  2. FLEXERIL (CYCLOBENZAPRINE HYDROCHLORIDE) [Concomitant]
  3. CALCIUM (CALCIUM) [Concomitant]
  4. SERTRALINE (SERTRALINE) (SERTRALINE) [Concomitant]
  5. ASPIRIN (ACETYLSALCYLIC ACID) [Concomitant]
  6. SIMVASTATIN (SIMVASTATIN) [Concomitant]
  7. VENOFER [Concomitant]
  8. HEPARIN (HEPARIN) [Concomitant]
  9. EPOGEN (EPOETIN ALFA) [Concomitant]
  10. BODY QUEST ICE CREAM [Concomitant]
  11. TRAZODONE (TRAZODONE) [Concomitant]
  12. CARVEDILOL (CARVEDILOL) [Concomitant]
  13. PANTOPRAZOLE (PANTOPRAZOLE) [Concomitant]

REACTIONS (9)
  - Chest pain [None]
  - Hypoaesthesia [None]
  - Dyspnoea [None]
  - Diarrhoea [None]
  - Vomiting [None]
  - Nausea [None]
  - Pruritus [None]
  - Drug hypersensitivity [None]
  - Device occlusion [None]
